FAERS Safety Report 6641176-5 (Version None)
Quarter: 2010Q1

REPORT INFORMATION
  Report Type: 
  Country: None (occurrence: None)
  Receive Date: 20100303
  Receipt Date: 20090629
  Transmission Date: 20100710
  Serious: Yes (Disabling)
  Sender: FDA-Public Use
  Company Number: 641134

PATIENT
  Age: 63 Year
  Sex: Female
  Weight: 122.9 kg

DRUGS (9)
  1. BONIVA [Suspect]
     Indication: OSTEOPOROSIS
     Dosage: 3 MG 1 PER 3 MONTH INTRAVENOUS
     Route: 042
     Dates: start: 20090619
  2. DIOVAN HCT [Concomitant]
  3. OXYIR (OXYCODONE) [Concomitant]
  4. MS CONTIN [Concomitant]
  5. MELOXICAM [Concomitant]
  6. LEXAPRO [Concomitant]
  7. SYMBICORT [Concomitant]
  8. MOBIC [Concomitant]
  9. CLONAZEPAM [Concomitant]

REACTIONS (10)
  - ARTHRALGIA [None]
  - BACK PAIN [None]
  - HEADACHE [None]
  - INJECTION SITE DISCOMFORT [None]
  - INJECTION SITE ERYTHEMA [None]
  - INJECTION SITE INFLAMMATION [None]
  - INJECTION SITE SWELLING [None]
  - OEDEMA PERIPHERAL [None]
  - PYREXIA [None]
  - SWELLING [None]
